FAERS Safety Report 14208219 (Version 1)
Quarter: 2017Q4

REPORT INFORMATION
  Report Type: Spontaneous
  Country: US (occurrence: US)
  Receive Date: 20171120
  Receipt Date: 20171120
  Transmission Date: 20180321
  Serious: Yes (Hospitalization)
  Sender: FDA-Public Use
  Company Number: None

PATIENT
  Age: 14 Year
  Sex: Male
  Weight: 49.5 kg

DRUGS (1)
  1. CEFZIL [Suspect]
     Active Substance: CEFPROZIL
     Indication: PNEUMONIA
     Dates: start: 20110928, end: 20110928

REACTIONS (6)
  - Vomiting [None]
  - Dehydration [None]
  - Renal failure [None]
  - Poor venous access [None]
  - Sinusitis [None]
  - Sepsis [None]

NARRATIVE: CASE EVENT DATE: 20110928
